FAERS Safety Report 4507373-X (Version None)
Quarter: 2004Q4

REPORT INFORMATION
  Report Type: 
  Country: None (occurrence: None)
  Receive Date: 20041109
  Receipt Date: 20041029
  Transmission Date: 20050328
  Serious: Yes (Hospitalization)
  Sender: FDA-Public Use
  Company Number: ALB/04/01/USA

PATIENT
  Age: 50 Year
  Sex: Female
  Weight: 65.7716 kg

DRUGS (18)
  1. ALBUMIN (HUMAN) [Suspect]
     Indication: INFUSION
     Dosage: 5 ML,  I.V.
     Route: 042
     Dates: start: 20040601, end: 20040601
  2. ALBUMIN (HUMAN) [Suspect]
     Indication: PORPHYRIA ACUTE
     Dosage: 5 ML,  I.V.
     Route: 042
     Dates: start: 20040601, end: 20040601
  3. ALBUMIN (HUMAN) [Suspect]
  4. ALBUMIN (HUMAN) [Suspect]
  5. ALBUMIN (HUMAN) [Suspect]
  6. ALBUMIN (HUMAN) [Suspect]
  7. PANHEMATIN [Suspect]
     Indication: PORPHYRIA ACUTE
     Dosage: 150 MG, B.I.D., I.V.
     Route: 042
  8. PANHEMATIN [Suspect]
  9. DEXTROSE 5% IN WATER (D5W) (GLUCOSE) (SOLUTION) [Concomitant]
  10. HEPARIN FLUSH (HEPARIN) [Concomitant]
  11. DARVOCET-N (PROPACET) [Concomitant]
  12. KYTRIL [Concomitant]
  13. TENEX [Concomitant]
  14. FOSAMAX [Concomitant]
  15. WARFARIN SODIUM [Concomitant]
  16. CALCIUM CARBONATE (CALCIUM CARBONATE) [Concomitant]
  17. SENOKOT [Concomitant]
  18. COLACE (DOCUSATE SODIUM) [Concomitant]

REACTIONS (4)
  - COAGULOPATHY [None]
  - HYPOTENSION [None]
  - PYREXIA [None]
  - STENOTROPHOMONAS INFECTION [None]
